FAERS Safety Report 9037220 (Version 2)
Quarter: 2013Q1

REPORT INFORMATION
  Report Type: Spontaneous
  Country: US (occurrence: None)
  Receive Date: 20121211
  Receipt Date: 20130117
  Transmission Date: 20140127
  Serious: Yes (Hospitalization)
  Sender: FDA-Public Use
  Company Number: 2012PROUSA02321

PATIENT
  Age: 59 Year
  Sex: Male
  Weight: 82.5 kg

DRUGS (8)
  1. PROVENGE [Suspect]
     Indication: PROSTATE CANCER METASTATIC
     Dosage: 250 ML, SINGLE, INTRAVENOUS
     Route: 042
     Dates: start: 20121119, end: 20121119
  2. LUPRON (LEUPRORELIN ACETATE) [Concomitant]
  3. AMLODIPINE (AMLODIPINE BESILATE) [Concomitant]
  4. METOPROLOL (METOPROLOL TARTRATE) [Concomitant]
  5. DENOSUMAB (DENOSUMAB) (RANMARK)) [Concomitant]
  6. DIOVAN (VALSARTAN) [Concomitant]
  7. MULTIVITAMIN (VITAMINS NOS) [Concomitant]
  8. TYLENOL ARTHRITIS (PARACETAMOL) [Concomitant]

REACTIONS (7)
  - Staphylococcal infection [None]
  - Spinal cord compression [None]
  - Intraspinal abscess [None]
  - Urinary incontinence [None]
  - Faecal incontinence [None]
  - Monoplegia [None]
  - Device related infection [None]
